FAERS Safety Report 23369815 (Version 1)
Quarter: 2024Q1

REPORT INFORMATION
  Report Type: Spontaneous
  Country: CN (occurrence: None)
  Receive Date: 20240105
  Receipt Date: 20240105
  Transmission Date: 20240410
  Serious: Yes (Hospitalization, Other)
  Sender: FDA-Public Use
  Company Number: 2024A000984

PATIENT
  Age: 21618 Day
  Sex: Female

DRUGS (1)
  1. LYNPARZA [Suspect]
     Active Substance: OLAPARIB
     Indication: Ovarian endometrioid carcinoma
     Dosage: 300MG QD AFTER BREAKFAST AND 150MG QD AFTER DINNER
     Route: 048
     Dates: start: 20230725, end: 20231219

REACTIONS (2)
  - Myelosuppression [Recovering/Resolving]
  - Anaemia [Recovering/Resolving]

NARRATIVE: CASE EVENT DATE: 20231221
